FAERS Safety Report 7998938-1 (Version None)
Quarter: 2011Q4

REPORT INFORMATION
  Report Type: 
  Country: None (occurrence: None)
  Receive Date: 20111221
  Receipt Date: 20111215
  Transmission Date: 20120403
  Serious: Yes (Other)
  Sender: FDA-Public Use
  Company Number: NL-GLAXOSMITHKLINE-B0770707A

PATIENT
  Sex: Female
  Weight: 82 kg

DRUGS (3)
  1. CLONAZEPAM [Concomitant]
     Dosage: .5MG PER DAY
     Route: 048
     Dates: start: 20110101
  2. PAROXETINE HCL [Suspect]
     Indication: PANIC ATTACK
     Route: 048
     Dates: start: 20101001, end: 20110101
  3. SEROQUEL [Suspect]
     Indication: PRODUCT USED FOR UNKNOWN INDICATION
     Dosage: 100MG PER DAY
     Route: 065
     Dates: start: 20100901, end: 20101201

REACTIONS (1)
  - TARDIVE DYSKINESIA [None]
